FAERS Safety Report 11944129 (Version 2)
Quarter: 2017Q1

REPORT INFORMATION
  Report Type: Spontaneous
  Country: PL (occurrence: PL)
  Receive Date: 20160125
  Receipt Date: 20170103
  Transmission Date: 20170428
  Serious: Yes (Other)
  Sender: FDA-Public Use
  Company Number: PL-SUN PHARMACEUTICAL INDUSTRIES LTD-2016R1-109973

PATIENT
  Age: 16 Year
  Sex: Female

DRUGS (3)
  1. IMATINIB [Suspect]
     Active Substance: IMATINIB
     Dosage: 800 MG, DAILY
     Route: 065
     Dates: end: 20140119
  2. IMATINIB [Suspect]
     Active Substance: IMATINIB
     Indication: CHRONIC MYELOID LEUKAEMIA
     Dosage: 300 MG/M2 OR 500 MG/DAY
     Route: 065
     Dates: start: 20121213
  3. IMATINIB [Suspect]
     Active Substance: IMATINIB
     Dosage: 500 MG/M2 OR 900 MG/DAY
     Route: 065

REACTIONS (8)
  - Headache [Recovering/Resolving]
  - Treatment failure [Unknown]
  - Nausea [Recovering/Resolving]
  - Drug intolerance [Unknown]
  - Toothache [Recovering/Resolving]
  - Therapeutic response changed [Unknown]
  - Musculoskeletal pain [Recovering/Resolving]
  - Somnolence [Recovering/Resolving]
